FAERS Safety Report 5739861-2 (Version None)
Quarter: 2008Q2

REPORT INFORMATION
  Report Type: 
  Country: None (occurrence: None)
  Receive Date: 20080513
  Receipt Date: 20080513
  Transmission Date: 20081010
  Serious: Yes (Other)
  Sender: FDA-Public Use
  Company Number: None

PATIENT
  Sex: Male
  Weight: 15.8759 kg

DRUGS (1)
  1. ZYRTEC [Suspect]
     Indication: SEASONAL ALLERGY
     Dosage: 2.5 MG  1X DAILY PO
     Route: 048
     Dates: start: 20080412, end: 20080507

REACTIONS (8)
  - ABNORMAL BEHAVIOUR [None]
  - AGGRESSION [None]
  - ANGER [None]
  - IRRITABILITY [None]
  - LETHARGY [None]
  - MOOD SWINGS [None]
  - OPPOSITIONAL DEFIANT DISORDER [None]
  - SLEEP DISORDER [None]
